FAERS Safety Report 8766235 (Version 5)
Quarter: 2014Q4

REPORT INFORMATION
  Report Type: Spontaneous
  Country: US (occurrence: US)
  Receive Date: 20120904
  Receipt Date: 20141001
  Transmission Date: 20150529
  Serious: Yes (Death, Hospitalization, Other)
  Sender: FDA-Public Use
  Company Number: US-009507513-1208USA010964

PATIENT
  Sex: Female
  Weight: 51.25 kg

DRUGS (6)
  1. ACTONEL [Suspect]
     Active Substance: RISEDRONATE SODIUM
     Indication: OSTEOPOROSIS
     Dosage: 35 MG, QW
     Route: 048
     Dates: start: 200606, end: 200609
  2. FOSAMAX [Suspect]
     Active Substance: ALENDRONATE SODIUM
     Indication: OSTEOPENIA
  3. FOSAMAX [Suspect]
     Active Substance: ALENDRONATE SODIUM
     Indication: OSTEOPOROSIS
     Dosage: 70 MG, QW
     Route: 048
     Dates: start: 200609, end: 201108
  4. OMEPRAZOLE. [Concomitant]
     Active Substance: OMEPRAZOLE
     Indication: GASTROOESOPHAGEAL REFLUX DISEASE
     Dosage: UNK
     Dates: start: 2006, end: 2011
  5. ACTONEL [Suspect]
     Active Substance: RISEDRONATE SODIUM
     Indication: OSTEOPENIA
  6. ALENDRONATE SODIUM. [Suspect]
     Active Substance: ALENDRONATE SODIUM
     Indication: OSTEOPOROSIS

REACTIONS (25)
  - Staphylococcal infection [Unknown]
  - Foot fracture [Unknown]
  - Femur fracture [Unknown]
  - Staphylococcal infection [Fatal]
  - Knee arthroplasty [Unknown]
  - Coronary artery disease [Unknown]
  - Open reduction of fracture [Unknown]
  - Surgery [Unknown]
  - Fall [Unknown]
  - Cellulitis [Unknown]
  - Staphylococcal infection [Unknown]
  - Osteoarthritis [Unknown]
  - Hypertension [Not Recovered/Not Resolved]
  - Colon operation [Unknown]
  - Ulcer [Unknown]
  - Cardiac pacemaker insertion [Unknown]
  - Gouty arthritis [Unknown]
  - Joint effusion [Unknown]
  - Low turnover osteopathy [Unknown]
  - Staphylococcal sepsis [Fatal]
  - Cardiac pacemaker removal [Unknown]
  - Cardiac pacemaker replacement [Unknown]
  - Arrhythmia [Unknown]
  - Tooth loss [Unknown]
  - Cataract operation [Unknown]

NARRATIVE: CASE EVENT DATE: 20070810
